FAERS Safety Report 6387491-4 (Version None)
Quarter: 2009Q4

REPORT INFORMATION
  Report Type: 
  Country: None (occurrence: None)
  Receive Date: 20091005
  Receipt Date: 20090924
  Transmission Date: 20100525
  Serious: Yes (Hospitalization)
  Sender: FDA-Public Use
  Company Number: US-BIOGENIDEC-2009BI024024

PATIENT
  Age: 60 Year
  Sex: Female
  Weight: 99 kg

DRUGS (5)
  1. AVONEX [Suspect]
     Indication: MULTIPLE SCLEROSIS
     Route: 030
     Dates: start: 20050530
  2. CLONIDINE [Concomitant]
     Indication: HYPERTENSION
  3. METOPROLOL [Concomitant]
     Indication: HYPERTENSION
  4. AMLODIPINE [Concomitant]
     Indication: HYPERTENSION
  5. DIOVAN [Concomitant]
     Indication: HYPERTENSION

REACTIONS (10)
  - BACK PAIN [None]
  - GASTRIC ULCER [None]
  - INFLUENZA LIKE ILLNESS [None]
  - INTERVERTEBRAL DISC PROTRUSION [None]
  - MUSCLE SPASMS [None]
  - SENSORY LOSS [None]
  - SPINAL COLUMN STENOSIS [None]
  - STRESS [None]
  - TYPE 2 DIABETES MELLITUS [None]
  - VISUAL ACUITY REDUCED [None]
